FAERS Safety Report 9844885 (Version 1)
Quarter: 2014Q1

REPORT INFORMATION
  Report Type: Spontaneous
  Country: US (occurrence: None)
  Receive Date: 20140123
  Receipt Date: 20140123
  Transmission Date: 20141002
  Serious: Yes (Disabling)
  Sender: FDA-Public Use
  Company Number: None

PATIENT
  Age: 39 Year
  Sex: Female
  Weight: 74.84 kg

DRUGS (2)
  1. TOPIRAMATE [Suspect]
     Indication: DEPRESSION
     Route: 048
     Dates: start: 20130815, end: 20140102
  2. TOPIRAMATE [Suspect]
     Indication: BIPOLAR DISORDER
     Route: 048
     Dates: start: 20130815, end: 20140102

REACTIONS (2)
  - Gastrooesophageal reflux disease [None]
  - No therapeutic response [None]
